FAERS Safety Report 24284582 (Version 1)
Quarter: 2024Q3

REPORT INFORMATION
  Report Type: Spontaneous
  Country: US (occurrence: US)
  Receive Date: 20240905
  Receipt Date: 20240905
  Transmission Date: 20241017
  Serious: Yes (Hospitalization)
  Sender: AMNEAL
  Company Number: US-AMNEAL PHARMACEUTICALS-2024-AMRX-03161

PATIENT
  Age: 0 Year
  Sex: Male
  Weight: 9.66 kg

DRUGS (1)
  1. VIGABATRIN [Suspect]
     Active Substance: VIGABATRIN
     Indication: Seizure
     Dosage: MIX 02 PACKETS IN 20 ML OF WATER AND GIVE/TAKE 12 ML (600 MG TOTAL) BY MOUTH OR NASOGASTRIC TUBE TWO
     Route: 048
     Dates: start: 202311

REACTIONS (1)
  - Hospitalisation [Unknown]

NARRATIVE: CASE EVENT DATE: 20240801
